FAERS Safety Report 6982539-8 (Version None)
Quarter: 2010Q3

REPORT INFORMATION
  Report Type: 
  Country: None (occurrence: None)
  Receive Date: 20100914
  Receipt Date: 20100227
  Transmission Date: 20110219
  Serious: No
  Sender: FDA-Public Use
  Company Number: US-PFIZER INC-2010025483

PATIENT
  Sex: Female
  Weight: 129 kg

DRUGS (8)
  1. LYRICA [Suspect]
     Dosage: 75 MG, 2X/DAY
     Route: 048
     Dates: start: 20100101
  2. PROTONIX [Concomitant]
     Indication: ABDOMINAL DISCOMFORT
     Dosage: UNK
  3. LASIX [Concomitant]
     Indication: DIURETIC THERAPY
     Dosage: 20 MG, 2X/DAY
     Route: 048
  4. POTASSIUM [Concomitant]
     Dosage: UNK
  5. GEMFIBROZIL [Concomitant]
     Indication: BLOOD TRIGLYCERIDES INCREASED
     Dosage: UNK
  6. NOVOLOG [Concomitant]
     Indication: DIABETES MELLITUS
     Dosage: UNK
  7. LANTUS [Concomitant]
     Indication: DIABETES MELLITUS
     Dosage: UNK
  8. RISPERDAL [Concomitant]
     Indication: DEPRESSION
     Dosage: 3 MG, 1X/DAY

REACTIONS (4)
  - ASTHENIA [None]
  - DIZZINESS [None]
  - PERSONALITY CHANGE [None]
  - SOMNOLENCE [None]
